FAERS Safety Report 11025906 (Version 2)
Quarter: 2015Q4

REPORT INFORMATION
  Report Type: Other
  Country: GB (occurrence: GB)
  Receive Date: 20150414
  Receipt Date: 20151129
  Transmission Date: 20160304
  Serious: Yes (Other)
  Sender: FDA-Public Use
  Company Number: GB-MYLANLABS-2015M1010696

PATIENT

DRUGS (13)
  1. TERBUTALINE [Concomitant]
     Active Substance: TERBUTALINE
     Dosage: UNK (STILL ON THIS)
     Dates: start: 20100512
  2. SIMVASTATIN. [Suspect]
     Active Substance: SIMVASTATIN
     Dosage: 40 MG, QD (AT NIGHT)
     Route: 048
  3. HYDROXYZINE HYDROCHLORIDE. [Interacting]
     Active Substance: HYDROXYZINE HYDROCHLORIDE
     Dosage: 25 MG, QD (AT NIGHT)
     Route: 048
  4. ASPIRIN                            /00002701/ [Concomitant]
     Active Substance: ASPIRIN
     Dosage: UNK (STILL ON THIS)
     Dates: start: 20001127
  5. LEVOTHYROXINE. [Concomitant]
     Active Substance: LEVOTHYROXINE
     Dosage: UNK (STILL ON THIS)
     Dates: start: 20120419
  6. ACIDEX                             /01521901/ [Concomitant]
     Active Substance: CALCIUM CARBONATE\SODIUM ALGINATE\SODIUM BICARBONATE
     Dosage: UNK (STILL ON THIS)
     Dates: start: 20070419
  7. SERETIDE [Concomitant]
     Active Substance: FLUTICASONE FUROATE\SALMETEROL XINAFOATE
     Dosage: UNK (STILL ON THIS)
     Dates: start: 20100630
  8. TRAMADOL. [Concomitant]
     Active Substance: TRAMADOL
     Dosage: UNK (STILL ON THIS)
     Dates: start: 20130122
  9. ALENDRONIC ACID [Concomitant]
     Active Substance: ALENDRONIC ACID
     Dosage: UNK (STILL ON THIS)
     Dates: start: 20110728
  10. CALCIUM CARBONATE. [Concomitant]
     Active Substance: CALCIUM CARBONATE
     Dosage: UNK (STILL ON THIS)
     Dates: start: 20110728
  11. CARBOCISTEINE [Concomitant]
     Active Substance: CARBOCYSTEINE
     Dosage: UNK (STILL ON THIS)
     Dates: start: 20110428
  12. METFOREM [Concomitant]
     Active Substance: METFORMIN HYDROCHLORIDE
     Dosage: UNK (STILL ON THIS)
     Dates: start: 20140321
  13. TIOTROPIUM [Concomitant]
     Active Substance: TIOTROPIUM
     Dosage: UNK (STILL ON THIS)
     Dates: start: 20100630

REACTIONS (3)
  - Vomiting [Recovered/Resolved]
  - Drug interaction [Unknown]
  - Abdominal pain upper [Recovered/Resolved]
